FAERS Safety Report 8903218 (Version 2)
Quarter: 2012Q4

REPORT INFORMATION
  Report Type: 
  Country: IE (occurrence: IE)
  Receive Date: 20121112
  Receipt Date: 20121121
  Transmission Date: 20130627
  Serious: No
  Sender: FDA-Public Use
  Company Number: IE-COVIDIEN/TYCO HEALTHCARE/MALLINCKRODT-T201203872

PATIENT
  Age: 25 Year
  Sex: Female
  Weight: 46 kg

DRUGS (3)
  1. OPTIRAY 300 [Suspect]
     Indication: COMPUTERISED TOMOGRAM
     Dosage: 90 ml, single, 2.5 ml/sec
     Route: 042
     Dates: start: 20121107, end: 20121107
  2. PREDNISOLONE [Concomitant]
     Indication: PREMEDICATION
     Dosage: 20 mg at midnight
     Route: 048
     Dates: start: 20121107
  3. PREDNISOLONE [Concomitant]
     Dosage: 20 mg at 08:00 am
     Route: 048
     Dates: start: 20121107

REACTIONS (5)
  - Tongue oedema [Recovered/Resolved]
  - Paraesthesia oral [Recovered/Resolved]
  - Rash [Recovered/Resolved]
  - Urticaria [Recovered/Resolved]
  - Sneezing [Recovered/Resolved]
